FAERS Safety Report 4577449-X (Version None)
Quarter: 2005Q1

REPORT INFORMATION
  Report Type: 
  Country: None (occurrence: None)
  Receive Date: 20050208
  Receipt Date: 20050121
  Transmission Date: 20050727
  Serious: Yes (Other)
  Sender: FDA-Public Use
  Company Number: B0365811A

PATIENT
  Age: 56 Year
  Sex: Male

DRUGS (5)
  1. LAMICTAL [Suspect]
     Indication: DEPRESSION
  2. CITALOPRAM [Suspect]
     Indication: DEPRESSION
     Dosage: SEE DOSAGE TEXT
  3. ATORVASTATIN CALCIUM [Concomitant]
  4. RAMIPRIL [Concomitant]
  5. ASPIRIN [Concomitant]

REACTIONS (5)
  - GAMBLING [None]
  - HIGH RISK SEXUAL BEHAVIOUR [None]
  - HYPOMANIA [None]
  - IMPAIRED WORK ABILITY [None]
  - IMPULSIVE BEHAVIOUR [None]
